FAERS Safety Report 11984991 (Version 2)
Quarter: 2016Q1

REPORT INFORMATION
  Report Type: Spontaneous
  Country: DE (occurrence: DE)
  Receive Date: 20160201
  Receipt Date: 20160225
  Transmission Date: 20160526
  Serious: Yes (Hospitalization, Other)
  Sender: FDA-Public Use
  Company Number: DE-SA-2016SA013095

PATIENT
  Age: 43 Year
  Sex: Male
  Weight: 94 kg

DRUGS (4)
  1. AUBAGIO [Suspect]
     Active Substance: TERIFLUNOMIDE
     Indication: MULTIPLE SCLEROSIS
     Route: 048
     Dates: start: 20140407
  2. ALFUZOSIN [Suspect]
     Active Substance: ALFUZOSIN
     Indication: MICTURITION DISORDER
     Route: 048
     Dates: start: 201403
  3. IRBESARTAN COMP [Concomitant]
     Indication: HYPERTENSION
     Dosage: STARTED BEFORE 2014; DOSE: 300/12.5 MG
     Route: 048
  4. OMEPRAZOLE. [Concomitant]
     Active Substance: OMEPRAZOLE
     Indication: ABDOMINAL DISCOMFORT
     Route: 048

REACTIONS (4)
  - Asthenia [Unknown]
  - Atrial flutter [Unknown]
  - Atrial fibrillation [Unknown]
  - Atrial fibrillation [Recovered/Resolved]

NARRATIVE: CASE EVENT DATE: 20150909
